FAERS Safety Report 10074264 (Version 1)
Quarter: 2014Q2

REPORT INFORMATION
  Report Type: Spontaneous
  Country: US (occurrence: US)
  Receive Date: 20140411
  Receipt Date: 20140411
  Transmission Date: 20141212
  Serious: No
  Sender: FDA-Public Use
  Company Number: US-SANOFI-AVENTIS-2013SA039021

PATIENT
  Age: 65 Year
  Sex: Male
  Weight: 86.18 kg

DRUGS (2)
  1. ALLEGRA D [Suspect]
     Indication: HYPERSENSITIVITY
     Route: 048
     Dates: start: 20130411, end: 20130411
  2. BENADRYL ALLERGY [Concomitant]

REACTIONS (4)
  - Palpitations [Unknown]
  - Ocular hyperaemia [Unknown]
  - Hypertension [Unknown]
  - Dizziness [Unknown]
